FAERS Safety Report 10930221 (Version 3)
Quarter: 2015Q2

REPORT INFORMATION
  Report Type: Spontaneous
  Country: US (occurrence: US)
  Receive Date: 20150319
  Receipt Date: 20150522
  Transmission Date: 20150821
  Serious: Yes (Other)
  Sender: FDA-Public Use
  Company Number: US-PFIZER INC-2015094684

PATIENT
  Age: 58 Year
  Sex: Female

DRUGS (13)
  1. IBRANCE [Suspect]
     Active Substance: PALBOCICLIB
     Indication: BREAST CANCER METASTATIC
     Dosage: 125 MG, CYCLIC (DAILY ON DAYS 1-21, OFF FOR 7 DAYS)
     Route: 048
     Dates: start: 20150210
  2. AMBIEN [Concomitant]
     Active Substance: ZOLPIDEM TARTRATE
     Indication: SLEEP DISORDER
     Dosage: 5 MG, AT BEDTIME AS NEEDED
     Route: 048
  3. ZOLADEX [Concomitant]
     Active Substance: GOSERELIN ACETATE
     Dosage: 10.8 MG, AS DIRECTED
     Route: 058
  4. FEMARA [Concomitant]
     Active Substance: LETROZOLE
     Dosage: 2.5 MG, DAILY
     Route: 048
     Dates: start: 20150210
  5. XGEVA [Concomitant]
     Active Substance: DENOSUMAB
     Dosage: 100 MG, MONTHLY (EVERY 28 DAYS)
     Route: 058
     Dates: start: 20110925
  6. ASPIRIN 81 [Concomitant]
     Dosage: 81 MG, DAILY
     Route: 048
  7. OXYCODONE HCL [Concomitant]
     Active Substance: OXYCODONE HYDROCHLORIDE
     Indication: PAIN
     Dosage: 5 MG EVERY 3-4 HOURS AS NEEDED
     Route: 048
  8. VITAMIN D3 [Concomitant]
     Active Substance: CHOLECALCIFEROL
     Dosage: 10000 IU, DAILY
     Route: 048
  9. NEUPOGEN [Concomitant]
     Active Substance: FILGRASTIM
     Indication: NEUTROPENIA
     Dosage: 300 ?G, (AS DIRECTED FOR 3 DOSES)
     Route: 058
  10. AUGMENTIN [Concomitant]
     Active Substance: AMOXICILLIN\CLAVULANATE POTASSIUM
     Dosage: 1 DF, 2X/DAY (AMOXICILLIN 500 MG/CLAVULANIC ACID 125 MG)
     Route: 048
  11. ADVIL [Concomitant]
     Active Substance: IBUPROFEN
     Indication: PAIN
     Dosage: 200 MG, EVERY 8 HOURS AS NEEDED
     Route: 048
  12. LEVAQUIN [Concomitant]
     Active Substance: LEVOFLOXACIN
     Dosage: 500 MG, DAILY (ONE TABLET DAILY FOR 7 DAYS)
     Route: 048
  13. CALCIUM CARBONATE/VITAMIN D3 [Concomitant]
     Dosage: 1 CAPSULE, DAILY (CALCIUM CARBONATE 600 MG; COLECALCIFEROL 100 MG)
     Route: 048

REACTIONS (2)
  - Neutropenia [Recovered/Resolved]
  - Hepatic enzyme increased [Recovered/Resolved]

NARRATIVE: CASE EVENT DATE: 20150225
